FAERS Safety Report 19034670 (Version 1)
Quarter: 2021Q1

REPORT INFORMATION
  Report Type: Spontaneous
  Country: US (occurrence: US)
  Receive Date: 20210319
  Receipt Date: 20210319
  Transmission Date: 20210420
  Serious: No
  Sender: FDA-Public Use
  Company Number: US-INCYTE CORPORATION-2021IN001180

PATIENT

DRUGS (1)
  1. JAKAFI [Suspect]
     Active Substance: RUXOLITINIB
     Indication: POLYCYTHAEMIA VERA
     Dosage: 15MG AM/30MG PM
     Route: 048
     Dates: start: 2016

REACTIONS (3)
  - Hypotension [Unknown]
  - Dizziness [Unknown]
  - Blood sodium decreased [Unknown]
